FAERS Safety Report 18170182 (Version 1)
Quarter: 2020Q3

REPORT INFORMATION
  Report Type: Spontaneous
  Country: US (occurrence: US)
  Receive Date: 20200819
  Receipt Date: 20200819
  Transmission Date: 20201103
  Serious: Yes (Life-Threatening, Other)
  Sender: FDA-Public Use
  Company Number: US-MALLINCKRODT-T202003783

PATIENT

DRUGS (7)
  1. METHOTREXATE. [Suspect]
     Active Substance: METHOTREXATE
     Indication: PROPHYLAXIS AGAINST GRAFT VERSUS HOST DISEASE
     Dosage: 15 MILLIGRAM/SQ. METER (ON DAY +1)
     Route: 065
  2. MYCOPHENOLATE MOFETIL. [Suspect]
     Active Substance: MYCOPHENOLATE MOFETIL
     Indication: PROPHYLAXIS AGAINST GRAFT VERSUS HOST DISEASE
     Dosage: 250 MILLIGRAM, BID (DAY 100)
     Route: 065
  3. CYCLOSPORINE. [Suspect]
     Active Substance: CYCLOSPORINE
     Indication: PROPHYLAXIS AGAINST GRAFT VERSUS HOST DISEASE
     Dosage: UNK (ON DAY ?1)
     Route: 065
  4. PENTOSTATIN. [Suspect]
     Active Substance: PENTOSTATIN
     Indication: PROPHYLAXIS AGAINST GRAFT VERSUS HOST DISEASE
     Dosage: 4 MILLIGRAM/SQ. METER, QD, FOR 2 CONSECUTIVE DAYS (DAYS ?5?4)
     Route: 065
  5. METHOTREXATE. [Suspect]
     Active Substance: METHOTREXATE
     Dosage: 10 MILLIGRAM/SQ. METER (ON DAY +3)
     Route: 065
  6. TACROLIMUS. [Suspect]
     Active Substance: TACROLIMUS
     Indication: PROPHYLAXIS AGAINST GRAFT VERSUS HOST DISEASE
     Dosage: UNK (ON DAY ?1)
     Route: 065
  7. UVADEX [Suspect]
     Active Substance: METHOXSALEN
     Indication: PROPHYLAXIS AGAINST GRAFT VERSUS HOST DISEASE
     Dosage: UNK, 2 CONSECUTIVE DAYS (DAYS ?7, ?6) (EXTRACORPOREAL)
     Route: 050

REACTIONS (26)
  - Diarrhoea [Unknown]
  - Urinary tract infection [Unknown]
  - Device related infection [Unknown]
  - Angular cheilitis [Unknown]
  - Chronic graft versus host disease [Unknown]
  - Peripheral sensory neuropathy [Unknown]
  - Embolism [Unknown]
  - Hepatic failure [Unknown]
  - Product use in unapproved indication [Unknown]
  - Neutropenia [Unknown]
  - Upper respiratory tract infection [Unknown]
  - Skin exfoliation [Unknown]
  - Haemoglobin abnormal [Unknown]
  - Lymphopenia [Unknown]
  - Thrombocytopenia [Unknown]
  - Sepsis [Unknown]
  - Acute graft versus host disease [Unknown]
  - Rash [Unknown]
  - White blood cell disorder [Unknown]
  - Thrombosis [Unknown]
  - Electrocardiogram QT interval abnormal [Unknown]
  - Cystitis [Unknown]
  - Renal failure [Unknown]
  - Pneumonia [Unknown]
  - Dyspnoea [Unknown]
  - Febrile neutropenia [Unknown]
